FAERS Safety Report 24209340 (Version 1)
Quarter: 2024Q3

REPORT INFORMATION
  Report Type: Spontaneous
  Country: US (occurrence: US)
  Receive Date: 20240814
  Receipt Date: 20240814
  Transmission Date: 20241017
  Serious: No
  Sender: IPSEN
  Company Number: US-IPSEN Group, Research and Development-2024-15761

PATIENT
  Age: 39 Year
  Sex: Female

DRUGS (4)
  1. DYSPORT [Suspect]
     Active Substance: ABOBOTULINUMTOXINA
     Indication: Skin wrinkling
     Route: 030
     Dates: start: 20240719, end: 20240719
  2. DYSPORT [Suspect]
     Active Substance: ABOBOTULINUMTOXINA
     Indication: Skin wrinkling
  3. DYSPORT [Suspect]
     Active Substance: ABOBOTULINUMTOXINA
     Indication: Skin wrinkling
  4. DYSPORT [Suspect]
     Active Substance: ABOBOTULINUMTOXINA
     Indication: Off label use

REACTIONS (6)
  - Ocular discomfort [Unknown]
  - Periorbital swelling [Unknown]
  - Eye swelling [Recovering/Resolving]
  - Influenza like illness [Unknown]
  - Off label use [Unknown]
  - Product preparation error [Unknown]

NARRATIVE: CASE EVENT DATE: 20240101
